FAERS Safety Report 16708809 (Version 1)
Quarter: 2019Q3

REPORT INFORMATION
  Report Type: Spontaneous
  Country: DE (occurrence: DE)
  Receive Date: 20190816
  Receipt Date: 20190816
  Transmission Date: 20191004
  Serious: Yes (Other)
  Sender: FDA-Public Use
  Company Number: DE-SUN PHARMACEUTICAL INDUSTRIES LTD-2019RR-217705

PATIENT
  Age: 50 Year
  Sex: Female

DRUGS (7)
  1. UTROGESTAN [Suspect]
     Active Substance: PROGESTERONE
     Indication: HORMONE REPLACEMENT THERAPY
     Dosage: 1 CAPSULE (100 MG, 1 IN 1 D)
     Route: 048
     Dates: start: 201508, end: 201610
  2. UTROGESTAN [Suspect]
     Active Substance: PROGESTERONE
     Dosage: 1 CAPSULE (1 DOSAGE FORM, 1 IN 1 D)
     Route: 048
     Dates: start: 201612, end: 201703
  3. VALSARTAN. [Suspect]
     Active Substance: VALSARTAN
     Indication: BLOOD PRESSURE MEASUREMENT
     Dosage: 80 MILLIGRAM, QD
     Route: 048
  4. LEVOTHYROXINE SODIUM. [Concomitant]
     Active Substance: LEVOTHYROXINE SODIUM
     Indication: PRODUCT USED FOR UNKNOWN INDICATION
     Dosage: UNKNOWN ()
     Route: 065
  5. GYNOKADIN [Suspect]
     Active Substance: ESTRADIOL
     Indication: HORMONE REPLACEMENT THERAPY
     Dosage: 1 PUFF DAILY (1 DOSAGE FORMS, 1 D)
     Route: 062
     Dates: start: 201612, end: 201703
  6. GYNOKADIN [Suspect]
     Active Substance: ESTRADIOL
     Dosage: 1 PUFF DAILY (1 DOSAGE FORM, 1 IN 1)
     Route: 062
     Dates: start: 201508, end: 201610
  7. SERTRALINE HYDROCHLORIDE. [Concomitant]
     Active Substance: SERTRALINE HYDROCHLORIDE
     Indication: PRODUCT USED FOR UNKNOWN INDICATION
     Dosage: UNKNOWN ()
     Route: 065

REACTIONS (4)
  - Retinal vein occlusion [Recovered/Resolved]
  - Product odour abnormal [Unknown]
  - Product taste abnormal [Unknown]
  - Ophthalmic vein thrombosis [Unknown]

NARRATIVE: CASE EVENT DATE: 201704
